FAERS Safety Report 9245875 (Version 3)
Quarter: 2013Q3

REPORT INFORMATION
  Report Type: Spontaneous
  Country: US (occurrence: US)
  Receive Date: 20130422
  Receipt Date: 20130927
  Transmission Date: 20140515
  Serious: Yes (Death)
  Sender: FDA-Public Use
  Company Number: US-JNJFOC-20130411609

PATIENT
  Age: 47 Year
  Sex: Male
  Weight: 71.4 kg

DRUGS (8)
  1. REMICADE [Suspect]
     Indication: CROHN^S DISEASE
     Dosage: FREQUENCY/DOSING INTERVAL: 2 DOSES
     Route: 042
     Dates: start: 20000721, end: 2000
  2. AZATHIOPRINE [Suspect]
     Indication: CROHN^S DISEASE
     Route: 048
     Dates: start: 200003
  3. IRON SULFATE [Concomitant]
     Indication: ANAEMIA
     Dosage: DOSE: 325 (UNITS UNSPECIFIED)
     Route: 048
  4. PREDNISONE [Concomitant]
     Indication: CROHN^S DISEASE
     Route: 048
     Dates: start: 200003
  5. CLARITIN D [Concomitant]
     Indication: SEASONAL ALLERGY
     Route: 048
  6. RANITIDINE [Concomitant]
     Indication: GASTROOESOPHAGEAL REFLUX DISEASE
     Route: 048
  7. MULTIVITAMINS [Concomitant]
     Indication: MEDICAL DIET
     Route: 048
  8. ACIPHEX [Concomitant]
     Route: 065

REACTIONS (1)
  - Squamous cell carcinoma of lung [Fatal]
